FAERS Safety Report 6239996-4 (Version None)
Quarter: 2009Q2

REPORT INFORMATION
  Report Type: 
  Country: None (occurrence: None)
  Receive Date: 20090623
  Receipt Date: 20090611
  Transmission Date: 20091009
  Serious: Yes (Other)
  Sender: FDA-Public Use
  Company Number: PHHY2009JP09924

PATIENT
  Sex: Male

DRUGS (6)
  1. COMTAN [Suspect]
     Indication: DRUG EFFECT DECREASED
     Dosage: 300 MG/DAY
     Route: 048
     Dates: start: 20080801, end: 20090317
  2. COMTAN [Suspect]
     Dosage: 1 TAB THRICE DAILY
     Route: 048
  3. COMTAN [Suspect]
     Dosage: 300 MG/DAY
     Route: 048
     Dates: start: 20090401
  4. EC DOPARL [Concomitant]
     Indication: PARKINSON'S DISEASE
     Dosage: 3 DF, UNK
     Route: 048
     Dates: start: 20050506
  5. PRAMIPEXOLE DIHYDROCHLORIDE [Concomitant]
     Indication: PARKINSON'S DISEASE
     Dosage: 2.5 MG, UNK
     Route: 048
     Dates: start: 20050624
  6. ARTANE [Concomitant]
     Indication: TREMOR
     Dosage: 6 MG, UNK
     Route: 048
     Dates: start: 19990215

REACTIONS (5)
  - ABNORMAL BEHAVIOUR [None]
  - ANGER [None]
  - DYSKINESIA [None]
  - HALLUCINATION [None]
  - PSYCHIATRIC SYMPTOM [None]
